FAERS Safety Report 24090346 (Version 1)
Quarter: 2024Q3

REPORT INFORMATION
  Report Type: Spontaneous
  Country: CN (occurrence: CN)
  Receive Date: 20240715
  Receipt Date: 20240715
  Transmission Date: 20241016
  Serious: Yes (Death, Other)
  Sender: ADMA BIOLOGICS
  Company Number: CN-ADMA BIOLOGICS INC.-CN-2024ADM000099

PATIENT
  Age: 65 Year
  Sex: Male

DRUGS (17)
  1. HUMAN IMMUNOGLOBULIN G [Suspect]
     Active Substance: HUMAN IMMUNOGLOBULIN G
     Indication: Chronic inflammatory demyelinating polyradiculoneuropathy
     Dosage: 400 MG/KG, QD
     Route: 042
     Dates: start: 20231220
  2. MYCOPHENOLATE MOFETIL [Concomitant]
     Active Substance: MYCOPHENOLATE MOFETIL
     Indication: Chronic inflammatory demyelinating polyradiculoneuropathy
     Dosage: UNK, UNK
     Route: 065
     Dates: start: 202309
  3. METHYLPREDNISOLONE [Concomitant]
     Active Substance: METHYLPREDNISOLONE
     Indication: Chronic inflammatory demyelinating polyradiculoneuropathy
     Dosage: 40 MILLIGRAM, QD
     Route: 048
  4. MEROPENEM [Concomitant]
     Active Substance: MEROPENEM
     Indication: Chronic inflammatory demyelinating polyradiculoneuropathy
     Dosage: 3 GRAM, QD
     Route: 065
     Dates: start: 20231124, end: 20231207
  5. MEROPENEM [Concomitant]
     Active Substance: MEROPENEM
     Indication: Pulmonary nocardiosis
     Dosage: 3 GRAM, QD
     Route: 065
     Dates: start: 20231223, end: 20231227
  6. LINEZOLID [Concomitant]
     Active Substance: LINEZOLID
     Indication: Chronic inflammatory demyelinating polyradiculoneuropathy
     Dosage: 1.2 GRAM, QD
     Route: 065
     Dates: start: 20231124, end: 20231227
  7. LINEZOLID [Concomitant]
     Active Substance: LINEZOLID
     Indication: Pulmonary nocardiosis
  8. SULFAMETHOXAZOLE\TRIMETHOPRIM [Concomitant]
     Active Substance: SULFAMETHOXAZOLE\TRIMETHOPRIM
     Indication: Chronic inflammatory demyelinating polyradiculoneuropathy
     Dosage: 1600/320MG, QD
     Route: 065
     Dates: start: 20231127, end: 20231227
  9. SULFAMETHOXAZOLE\TRIMETHOPRIM [Concomitant]
     Active Substance: SULFAMETHOXAZOLE\TRIMETHOPRIM
     Indication: Pulmonary nocardiosis
  10. CEFTRIAXONE [Concomitant]
     Active Substance: CEFTRIAXONE\CEFTRIAXONE SODIUM
     Indication: Chronic inflammatory demyelinating polyradiculoneuropathy
     Dosage: 2 GRAM, QD
     Route: 065
     Dates: start: 20231217, end: 20231222
  11. CEFTRIAXONE [Concomitant]
     Active Substance: CEFTRIAXONE\CEFTRIAXONE SODIUM
     Indication: Pulmonary nocardiosis
  12. POLYMYXIN B [Concomitant]
     Active Substance: POLYMYXIN B
     Indication: Chronic inflammatory demyelinating polyradiculoneuropathy
     Dosage: 100WU, QD
     Route: 065
     Dates: start: 20231223, end: 20231227
  13. POLYMYXIN B [Concomitant]
     Active Substance: POLYMYXIN B
     Indication: Pulmonary nocardiosis
  14. ATORVASTATIN [Concomitant]
     Active Substance: ATORVASTATIN
     Indication: Hyperlipidaemia
     Dosage: UNK, UNK
     Route: 065
  15. AMIKACIN [Concomitant]
     Active Substance: AMIKACIN
     Indication: Pulmonary nocardiosis
     Dosage: 0.8 GRAM
     Route: 065
     Dates: start: 20231208, end: 20231216
  16. MOXIFLOXACIN [Concomitant]
     Active Substance: MOXIFLOXACIN
     Indication: Pulmonary nocardiosis
     Dosage: 0.8 GRAM
     Route: 065
     Dates: start: 20231208, end: 20231216
  17. CEFUROXIME [Concomitant]
     Active Substance: CEFUROXIME
     Indication: Pulmonary nocardiosis
     Dosage: 4.5 GRAM
     Route: 065
     Dates: start: 20231122, end: 20231123

REACTIONS (2)
  - Respiratory failure [Fatal]
  - Off label use [Unknown]
